FAERS Safety Report 7536049-X (Version None)
Quarter: 2011Q2

REPORT INFORMATION
  Report Type: 
  Country: None (occurrence: None)
  Receive Date: 20110609
  Receipt Date: 20110601
  Transmission Date: 20111010
  Serious: Yes (Hospitalization)
  Sender: FDA-Public Use
  Company Number: JP-ASTELLAS-2011JP003659

PATIENT
  Age: 42 Year
  Sex: Male
  Weight: 60 kg

DRUGS (35)
  1. TACROLIMUS [Suspect]
     Dosage: 3 MG, BID
     Route: 048
     Dates: start: 20100921, end: 20100922
  2. SULFASALAZINE [Suspect]
     Indication: COLITIS ULCERATIVE
     Dosage: 3000 MG, UNKNOWN/D
     Route: 048
     Dates: start: 20100802, end: 20100830
  3. FERO-GRADUMET [Concomitant]
     Indication: ANAEMIA
     Dosage: 1 DF, UNKNOWN/D
     Route: 048
     Dates: start: 20100802, end: 20100921
  4. MUCOSTA [Concomitant]
     Dosage: 100 MG, UNKNOWN/D
     Route: 048
     Dates: start: 20100802, end: 20100921
  5. ROCEPHIN [Concomitant]
     Indication: EPIDIDYMITIS
  6. SULFASALAZINE [Suspect]
     Dosage: 4500 MG, UNKNOWN/D
     Route: 048
     Dates: start: 20101014, end: 20101015
  7. PENTASA [Concomitant]
     Dosage: 250 MG, UNKNOWN/D
     Dates: start: 20101101, end: 20101111
  8. PENTASA [Concomitant]
     Dosage: 1000 MG, UNKNOWN/D
     Route: 048
     Dates: start: 20101120, end: 20101217
  9. PENTASA [Concomitant]
     Dosage: 1500 MG, UNKNOWN/D
     Route: 048
     Dates: start: 20101218, end: 20110121
  10. ZYVOX [Concomitant]
     Dosage: 1.2 MG, UNKNOWN/D
     Route: 065
     Dates: start: 20101022, end: 20101102
  11. LINEZOLID [Concomitant]
     Indication: PULMONARY EMBOLISM
  12. TACROLIMUS [Suspect]
     Dosage: 2.5 MG, BID
     Route: 048
     Dates: start: 20100923, end: 20100925
  13. VANCOMYCIN [Suspect]
     Indication: DEVICE RELATED INFECTION
     Dosage: 1.5 G, UNKNOWN/D
     Route: 048
     Dates: start: 20101006, end: 20101021
  14. VANCOMYCIN [Suspect]
     Indication: STAPHYLOCOCCAL BACTERAEMIA
  15. PENTASA [Concomitant]
     Dosage: 2000 MG, UNKNOWN/D
     Route: 048
     Dates: start: 20100802, end: 20100830
  16. FOLIC ACID [Concomitant]
     Dosage: 10 MG, UNKNOWN/D
     Route: 048
     Dates: start: 20100802, end: 20100921
  17. ROCEPHIN [Concomitant]
     Indication: ORCHITIS
     Dosage: 1 G, UNKNOWN/D
     Route: 065
     Dates: start: 20101015, end: 20101029
  18. TACROLIMUS [Suspect]
     Dosage: 1 MG, BID
     Route: 048
     Dates: start: 20101030, end: 20101101
  19. SULFASALAZINE [Suspect]
     Dosage: 4500 MG, UNKNOWN/D
     Route: 048
     Dates: start: 20100913, end: 20100921
  20. PENTASA [Concomitant]
     Dosage: 4000 MG, UNKNOWN/D
     Route: 048
     Dates: start: 20110219
  21. DENOSINE [Concomitant]
     Indication: CYTOMEGALOVIRUS ENTEROCOLITIS
     Dosage: 300 MG, UNKNOWN/D
     Route: 065
     Dates: start: 20100921, end: 20101005
  22. TACROLIMUS [Suspect]
     Indication: COLITIS ULCERATIVE
     Dosage: 2 MG, BID
     Route: 048
     Dates: start: 20100926, end: 20101007
  23. TACROLIMUS [Suspect]
     Dosage: 1.5 MG, BID
     Route: 048
     Dates: start: 20101112, end: 20110120
  24. VANCOMYCIN [Suspect]
     Indication: PULMONARY EMBOLISM
  25. TACROLIMUS [Suspect]
     Dosage: 1.25 MG, BID
     Route: 048
     Dates: start: 20101102, end: 20101111
  26. PENTASA [Concomitant]
     Dosage: 2000 MG, UNKNOWN/D
     Route: 048
     Dates: start: 20110122, end: 20110203
  27. TACROLIMUS [Suspect]
     Dosage: 0.75 MG, BID
     Route: 048
     Dates: start: 20101008, end: 20101029
  28. VANCOMYCIN [Suspect]
     Indication: SEPTIC EMBOLUS
  29. ASACOL [Concomitant]
     Dosage: 360 MG, UNKNOWN/D
     Route: 048
     Dates: start: 20100801, end: 20100913
  30. PENTASA [Concomitant]
     Dosage: 3000 MG, UNKNOWN/D
     Route: 048
     Dates: start: 20110204, end: 20110218
  31. CIPROFLOXACIN [Concomitant]
     Dosage: 600 MG, UNKNOWN/D
     Route: 065
     Dates: start: 20100921, end: 20101015
  32. LINEZOLID [Concomitant]
     Indication: SEPTIC EMBOLUS
  33. PENTASA [Concomitant]
     Dosage: 500 MG, UNKNOWN/D
     Route: 048
     Dates: start: 20101112, end: 20101119
  34. LINEZOLID [Concomitant]
     Indication: DEVICE RELATED INFECTION
     Dosage: UNK
     Route: 065
  35. LINEZOLID [Concomitant]
     Indication: STAPHYLOCOCCAL BACTERAEMIA

REACTIONS (9)
  - STAPHYLOCOCCAL BACTERAEMIA [None]
  - RENAL IMPAIRMENT [None]
  - ORCHITIS [None]
  - HYPOMAGNESAEMIA [None]
  - PULMONARY EMBOLISM [None]
  - SEPTIC EMBOLUS [None]
  - EPIDIDYMITIS [None]
  - DEVICE RELATED INFECTION [None]
  - DRUG HYPERSENSITIVITY [None]
